FAERS Safety Report 21711737 (Version 1)
Quarter: 2022Q4

REPORT INFORMATION
  Report Type: Other
  Country: CA (occurrence: CA)
  Receive Date: 20221212
  Receipt Date: 20221212
  Transmission Date: 20230112
  Serious: Yes (Hospitalization, Other)
  Sender: FDA-Public Use
  Company Number: CA-APOTEX-2022AP016421

PATIENT
  Age: 59 Year
  Sex: Female

DRUGS (3)
  1. IMATINIB [Suspect]
     Active Substance: IMATINIB
     Indication: Chronic myeloid leukaemia
     Dosage: 400 MILLIGRAM, QD
     Route: 048
  2. IMATINIB [Suspect]
     Active Substance: IMATINIB
     Dosage: UNK
     Route: 048
  3. ESTRADIOL [Concomitant]
     Active Substance: ESTRADIOL
     Indication: Product used for unknown indication
     Dosage: UNK
     Route: 065

REACTIONS (15)
  - Chronic myeloid leukaemia recurrent [Unknown]
  - Clostridium difficile infection [Unknown]
  - Feeling abnormal [Unknown]
  - Fluid intake reduced [Unknown]
  - Ulcer [Unknown]
  - Hypophagia [Unknown]
  - Lower respiratory tract infection [Unknown]
  - Product dose omission issue [Unknown]
  - Back pain [Unknown]
  - Bone pain [Unknown]
  - Blood potassium decreased [Unknown]
  - Muscle spasms [Unknown]
  - Gastrooesophageal reflux disease [Unknown]
  - Diarrhoea [Unknown]
  - Abdominal discomfort [Unknown]
